FAERS Safety Report 17749321 (Version 2)
Quarter: 2020Q2

REPORT INFORMATION
  Report Type: Spontaneous
  Country: US (occurrence: US)
  Receive Date: 20200506
  Receipt Date: 20200506
  Transmission Date: 20200714
  Serious: Yes (Hospitalization)
  Sender: FDA-Public Use
  Company Number: US-SHIRE-US202014863

PATIENT
  Age: 85 Year
  Sex: Female

DRUGS (6)
  1. LIALDA [Suspect]
     Active Substance: MESALAMINE
     Indication: ELECTROLYTE IMBALANCE
  2. LIALDA [Suspect]
     Active Substance: MESALAMINE
     Indication: HYPOMAGNESAEMIA
  3. LIALDA [Suspect]
     Active Substance: MESALAMINE
     Indication: MALNUTRITION
  4. LIALDA [Suspect]
     Active Substance: MESALAMINE
     Indication: HYPOALBUMINAEMIA
  5. LIALDA [Suspect]
     Active Substance: MESALAMINE
     Indication: COLITIS
     Dosage: 4.8 GRAM, 1X/DAY:QD
     Route: 048
     Dates: start: 20200414
  6. LIALDA [Suspect]
     Active Substance: MESALAMINE
     Indication: HYPOCALCAEMIA

REACTIONS (7)
  - Electrolyte imbalance [Not Recovered/Not Resolved]
  - Hypomagnesaemia [Not Recovered/Not Resolved]
  - Colitis [Not Recovered/Not Resolved]
  - Malnutrition [Not Recovered/Not Resolved]
  - Hypoalbuminaemia [Not Recovered/Not Resolved]
  - Product residue present [Not Recovered/Not Resolved]
  - Hypocalcaemia [Not Recovered/Not Resolved]

NARRATIVE: CASE EVENT DATE: 20200426
